FAERS Safety Report 22181780 (Version 3)
Quarter: 2023Q2

REPORT INFORMATION
  Report Type: Other
  Country: DE (occurrence: None)
  Receive Date: 20230406
  Receipt Date: 20230605
  Transmission Date: 20230722
  Serious: Yes (Other)
  Sender: FDA-Public Use
  Company Number: DE-ROCHE-3324429

PATIENT

DRUGS (1)
  1. HEMLIBRA [Suspect]
     Active Substance: EMICIZUMAB-KXWH
     Indication: Product used for unknown indication
     Dosage: AND HAS BEEN ON HEMLIBRA FOR 2 YRS AND 2 MONTHS.
     Route: 058

REACTIONS (3)
  - Thrombosis [Unknown]
  - Dyspnoea [Unknown]
  - Injection site pain [Unknown]
